FAERS Safety Report 16224129 (Version 1)
Quarter: 2019Q2

REPORT INFORMATION
  Report Type: Spontaneous
  Country: US (occurrence: US)
  Receive Date: 20190318
  Receipt Date: 20190318
  Transmission Date: 20190711
  Serious: Yes (Hospitalization, Other)
  Sender: FDA-Public Use
  Company Number: None

PATIENT
  Sex: Female

DRUGS (7)
  1. HUMIRA [Suspect]
     Active Substance: ADALIMUMAB
     Indication: HIDRADENITIS
  2. HUMIRA [Suspect]
     Active Substance: ADALIMUMAB
     Indication: HIDRADENITIS
     Route: 058
     Dates: start: 20180505
  3. KLONOPIN [Concomitant]
     Active Substance: CLONAZEPAM
  4. LYRICA [Concomitant]
     Active Substance: PREGABALIN
  5. VICODIN-- [Concomitant]
  6. LITHIUM. [Concomitant]
     Active Substance: LITHIUM
  7. ZANAFLEX-- [Concomitant]

REACTIONS (2)
  - Therapy cessation [None]
  - Surgery [None]
